FAERS Safety Report 5796849-3 (Version None)
Quarter: 2008Q2

REPORT INFORMATION
  Report Type: 
  Country: None (occurrence: None)
  Receive Date: 20080627
  Receipt Date: 20080624
  Transmission Date: 20081010
  Serious: Yes (Other)
  Sender: FDA-Public Use
  Company Number: FABR-12168

PATIENT
  Age: 13 Year
  Sex: Male
  Weight: 40 kg

DRUGS (6)
  1. FABRAZYME [Suspect]
     Indication: FABRY'S DISEASE
     Dosage: 35 MG, Q2W, INTRAVENOUS
     Route: 042
     Dates: start: 20070205
  2. HYDROXYZINE HCL (HYDROXYZINE) [Concomitant]
  3. ACETAMINOPHEN [Concomitant]
  4. HYDROCORTISONE SODIUM SUCCINATE [Concomitant]
  5. CARBAMAZEPINE [Concomitant]
  6. PRANLUKAST HYDRATE (PRANLUKAST) [Concomitant]

REACTIONS (4)
  - BLOOD IMMUNOGLOBULIN E INCREASED [None]
  - CYANOSIS [None]
  - DYSPNOEA [None]
  - OXYGEN SATURATION DECREASED [None]
